FAERS Safety Report 5241191-2 (Version None)
Quarter: 2007Q1

REPORT INFORMATION
  Report Type: 
  Country: None (occurrence: None)
  Receive Date: 20070220
  Receipt Date: 20070213
  Transmission Date: 20070707
  Serious: Yes (Other)
  Sender: FDA-Public Use
  Company Number: US-BAYER-200710503BCC

PATIENT
  Age: 70 Year
  Sex: Male
  Weight: 91 kg

DRUGS (5)
  1. ALKA SELTZER PLUS EFFERVESCENT COLD + COUGH [Suspect]
     Indication: NASOPHARYNGITIS
     Dosage: TOTAL DAILY DOSE: 1000 MG  UNIT DOSE: 250 MG
     Route: 048
     Dates: start: 20070207, end: 20070211
  2. COUMADIN [Concomitant]
  3. LOVASTIN [Concomitant]
  4. GLIMEPIRIDE [Concomitant]
  5. TYLENOL [Concomitant]
     Indication: SLEEP DISORDER

REACTIONS (1)
  - INTERNATIONAL NORMALISED RATIO INCREASED [None]
